FAERS Safety Report 10171828 (Version 3)
Quarter: 2014Q2

REPORT INFORMATION
  Report Type: Spontaneous
  Country: US (occurrence: None)
  Receive Date: 20140512
  Receipt Date: 20140613
  Transmission Date: 20141212
  Serious: Yes (Hospitalization, Other)
  Sender: FDA-Public Use
  Company Number: UTC-048297

PATIENT
  Age: 73 Year
  Sex: Male
  Weight: 90.7 kg

DRUGS (3)
  1. TYVASO [Suspect]
     Indication: PULMONARY ARTERIAL HYPERTENSION
     Route: 055
     Dates: start: 20140317
  2. WARFARIN (UNKNOWN) [Concomitant]
  3. MACITENTAN [Suspect]
     Indication: PRODUCT USED FOR UNKNOWN INDICATION
     Dates: start: 20140317

REACTIONS (7)
  - Gastrointestinal haemorrhage [None]
  - Pneumonia [None]
  - Oxygen saturation decreased [None]
  - Peripheral swelling [None]
  - Ulcer [None]
  - Haemoglobin decreased [None]
  - Fluid overload [None]
